FAERS Safety Report 25625226 (Version 1)
Quarter: 2025Q3

REPORT INFORMATION
  Report Type: Report from Study
  Country: BR (occurrence: BR)
  Receive Date: 20250731
  Receipt Date: 20250731
  Transmission Date: 20251020
  Serious: Yes (Hospitalization)
  Sender: EMD SERONO INC
  Company Number: BR-Merck Healthcare KGaA-2025037517

PATIENT
  Sex: Female

DRUGS (1)
  1. INTERFERON BETA-1A [Suspect]
     Active Substance: INTERFERON BETA-1A
     Indication: Multiple sclerosis
     Dates: start: 20241104

REACTIONS (4)
  - Muscular weakness [Not Recovered/Not Resolved]
  - Hypokinesia [Not Recovered/Not Resolved]
  - Multiple sclerosis relapse [Unknown]
  - Ill-defined disorder [Not Recovered/Not Resolved]
